FAERS Safety Report 6794213-1 (Version None)
Quarter: 2010Q2

REPORT INFORMATION
  Report Type: 
  Country: None (occurrence: None)
  Receive Date: 20100625
  Receipt Date: 20100616
  Transmission Date: 20101027
  Serious: Yes (Hospitalization)
  Sender: FDA-Public Use
  Company Number: US-BIOGENIDEC-2009BI013476

PATIENT
  Age: 62 Year
  Sex: Female

DRUGS (4)
  1. AVONEX [Suspect]
     Indication: MULTIPLE SCLEROSIS
     Route: 030
     Dates: start: 20030101
  2. AVONEX [Suspect]
     Route: 030
     Dates: start: 20040901
  3. AVONEX [Suspect]
     Route: 030
     Dates: start: 20040901
  4. AVONEX [Suspect]
     Route: 030
     Dates: start: 19960101, end: 20030101

REACTIONS (4)
  - ARTHRITIS INFECTIVE [None]
  - DEVICE RELATED INFECTION [None]
  - HIP ARTHROPLASTY [None]
  - JOINT DISLOCATION [None]
